FAERS Safety Report 17431981 (Version 1)
Quarter: 2020Q1

REPORT INFORMATION
  Report Type: Spontaneous
  Country: US (occurrence: US)
  Receive Date: 20200218
  Receipt Date: 20200218
  Transmission Date: 20200409
  Serious: No
  Sender: FDA-Public Use
  Company Number: US-PFIZER INC-2020066980

PATIENT
  Age: 78 Year
  Sex: Female
  Weight: 81.65 kg

DRUGS (1)
  1. LATANOPROST. [Suspect]
     Active Substance: LATANOPROST
     Indication: GLAUCOMA
     Dosage: 2 GTT, 1X/DAY (0.005% 2ML ONE DROP IN EACH EVERY EYE EACH NIGHT)
     Route: 047
     Dates: end: 2020

REACTIONS (6)
  - Eye irritation [Unknown]
  - Eyelid ptosis [Unknown]
  - Acne [Recovered/Resolved]
  - Swelling of eyelid [Not Recovered/Not Resolved]
  - Condition aggravated [Unknown]
  - Erythema of eyelid [Not Recovered/Not Resolved]

NARRATIVE: CASE EVENT DATE: 202001
